FAERS Safety Report 6386550-X (Version None)
Quarter: 2009Q4

REPORT INFORMATION
  Report Type: 
  Country: None (occurrence: None)
  Receive Date: 20091002
  Receipt Date: 20090319
  Transmission Date: 20100525
  Serious: No
  Sender: FDA-Public Use
  Company Number: US-ASTRAZENECA-2009UW07082

PATIENT
  Age: 87 Year
  Sex: Female

DRUGS (4)
  1. ARIMIDEX [Suspect]
     Route: 048
     Dates: start: 20081201
  2. INDERAL [Concomitant]
  3. BENICAR [Concomitant]
  4. ZOCOR [Concomitant]

REACTIONS (2)
  - ALOPECIA [None]
  - FEELING COLD [None]
